FAERS Safety Report 8301485-0 (Version None)
Quarter: 2012Q2

REPORT INFORMATION
  Report Type: 
  Country: None (occurrence: None)
  Receive Date: 20120420
  Receipt Date: 20120413
  Transmission Date: 20120825
  Serious: Yes (Other)
  Sender: FDA-Public Use
  Company Number: PHHY2012JP017533

PATIENT
  Sex: Female
  Weight: 52 kg

DRUGS (10)
  1. SUGAMMADEX [Suspect]
     Dates: start: 20110416, end: 20110416
  2. NICARDIPINE HCL [Suspect]
     Indication: BLOOD PRESSURE INCREASED
     Dosage: 120 MG, (5 ML/HR, 5 MG/HR)
     Route: 041
     Dates: start: 20110415, end: 20110418
  3. ROCURONIUM BROMIDE [Suspect]
     Indication: ANAESTHESIA
     Dates: start: 20110416, end: 20110416
  4. SEVOFLURANE [Suspect]
     Dates: start: 20110416, end: 20110416
  5. BETAMETHASONE [Suspect]
  6. NEUPOGEN [Suspect]
  7. PROPOFOL [Suspect]
     Indication: ANAESTHESIA
     Dates: start: 20110416, end: 20110416
  8. FENTANYL-100 [Suspect]
     Indication: ANAESTHESIA
     Dates: start: 20110416, end: 20110416
  9. MIDAZOLAM [Concomitant]
  10. NITROUS OXIDE [Concomitant]

REACTIONS (4)
  - HYPERTENSIVE NEPHROPATHY [None]
  - MATERNAL EXPOSURE DURING PREGNANCY [None]
  - PREMATURE DELIVERY [None]
  - BLOOD PRESSURE INCREASED [None]
